FAERS Safety Report 24685955 (Version 1)
Quarter: 2024Q4

REPORT INFORMATION
  Report Type: Spontaneous
  Country: US (occurrence: None)
  Receive Date: 20241129
  Receipt Date: 20241129
  Transmission Date: 20250114
  Serious: Yes (Hospitalization)
  Sender: Public
  Company Number: None

PATIENT
  Sex: Male

DRUGS (5)
  1. NUWIQ [Suspect]
     Active Substance: ANTIHEMOPHILIC FACTOR, HUMAN RECOMBINANT
     Indication: Factor VIII deficiency
     Dosage: FREQUENCY : EVERY OTHER DAY;?
     Route: 042
     Dates: start: 202401
  2. NUWIQ [Suspect]
     Active Substance: ANTIHEMOPHILIC FACTOR, HUMAN RECOMBINANT
     Indication: Factor VIII deficiency
     Dosage: FREQUENCY : EVERY OTHER DAY;?
     Route: 042
     Dates: start: 202401
  3. SEVENFACT [Concomitant]
     Active Substance: COAGULATION FACTOR VIIA RECOMBINANT HUMAN-JNCW
  4. NOVOSEVEN RT [Concomitant]
     Active Substance: COAGULATION FACTOR VIIA RECOMBINANT HUMAN
  5. HEMLIBRA [Concomitant]
     Active Substance: EMICIZUMAB-KXWH

REACTIONS (2)
  - Respiratory syncytial virus infection [None]
  - Head injury [None]

NARRATIVE: CASE EVENT DATE: 20241115
